FAERS Safety Report 4669109-1 (Version None)
Quarter: 2005Q2

REPORT INFORMATION
  Report Type: 
  Country: None (occurrence: None)
  Receive Date: 20050519
  Receipt Date: 20041028
  Transmission Date: 20051028
  Serious: Yes (Hospitalization)
  Sender: FDA-Public Use
  Company Number: 9207

PATIENT
  Age: 46 Year
  Sex: Female

DRUGS (4)
  1. FLUOROURACIL [Suspect]
     Indication: BREAST CANCER
     Dosage: 987.5 MG WEEKLY
     Route: 040
  2. METHOTREXATE [Suspect]
     Indication: BREAST CANCER
     Route: 042
  3. CYCLOPHOSPHAMIDE [Suspect]
     Indication: BREAST CANCER
     Route: 042
  4. TAMOXIFEN [Suspect]
     Indication: BREAST CANCER
     Route: 042

REACTIONS (6)
  - ARTERIAL DISORDER [None]
  - ERYTHEMA [None]
  - PAIN IN EXTREMITY [None]
  - PERIPHERAL ISCHAEMIA [None]
  - PULSE ABSENT [None]
  - SKIN DISCOLOURATION [None]
